FAERS Safety Report 5201659-1 (Version None)
Quarter: 2007Q1

REPORT INFORMATION
  Report Type: 
  Country: None (occurrence: None)
  Receive Date: 20070104
  Receipt Date: 20061227
  Transmission Date: 20070707
  Serious: Yes (Hospitalization)
  Sender: FDA-Public Use
  Company Number: 163-20785-06121258

PATIENT
  Age: 85 Year
  Sex: Female

DRUGS (1)
  1. THALOMID [Suspect]
     Indication: MULTIPLE MYELOMA
     Dosage: 50 MG DAILY ORAL
     Route: 048
     Dates: start: 20040501, end: 20061201

REACTIONS (1)
  - LOWER LIMB FRACTURE [None]
